FAERS Safety Report 4851115-5 (Version None)
Quarter: 2005Q4

REPORT INFORMATION
  Report Type: 
  Country: None (occurrence: None)
  Receive Date: 20051130
  Receipt Date: 20050816
  Transmission Date: 20060501
  Serious: No
  Sender: FDA-Public Use
  Company Number: FABR-11207

PATIENT
  Age: 11 Year
  Sex: Female
  Weight: 65.7716 kg

DRUGS (4)
  1. FABRAZYME [Suspect]
     Indication: FABRY'S DISEASE
     Dosage: 65 MG Q2WKS IV
     Route: 042
     Dates: start: 20030926
  2. FABRAZYME [Suspect]
  3. TYLENOL (CAPLET) [Concomitant]
  4. LORATADINE [Concomitant]

REACTIONS (1)
  - POOR VENOUS ACCESS [None]
